FAERS Safety Report 9690508 (Version 1)
Quarter: 2013Q4

REPORT INFORMATION
  Report Type: Spontaneous
  Country: FR (occurrence: FR)
  Receive Date: 20131115
  Receipt Date: 20131115
  Transmission Date: 20140711
  Serious: Yes (Hospitalization, Other)
  Sender: FDA-Public Use
  Company Number: FR-PFIZER INC-2013323113

PATIENT
  Age: 45 Year
  Sex: Female
  Weight: 45 kg

DRUGS (15)
  1. LYRICA [Suspect]
     Dosage: 50 MG, DAILY
     Route: 048
  2. LYRICA [Suspect]
     Dosage: 175 MG, DAILY
  3. LYRICA [Suspect]
     Dosage: 200 MG, DAILY
     Dates: end: 20131008
  4. TRANXENE [Suspect]
     Dosage: 1 DF, 2X/DAY, AS NEEDED
     Route: 048
     Dates: start: 20131001, end: 20131008
  5. SKENAN [Suspect]
     Dosage: 1 DF, 6 TIMES PER DAY
     Route: 048
     Dates: start: 20131004, end: 20131008
  6. ACUPAN [Suspect]
     Indication: ABDOMINAL PAIN
     Dosage: 4 DF, DAILY
     Route: 048
     Dates: start: 20131001
  7. TOPALGIC [Suspect]
     Indication: ABDOMINAL PAIN
     Dosage: 100 MG, 2X/DAY
     Route: 048
     Dates: start: 20131001
  8. TYSABRI [Suspect]
     Dosage: 1 DF, MONTHLY
     Route: 048
     Dates: start: 201305, end: 20131010
  9. PARACETAMOL [Suspect]
     Indication: PAIN
     Dosage: 1 G, 4MAXIMUM 4 DFS DAILY, AS NEEDED
     Dates: start: 20131001, end: 20131008
  10. LAROXYL [Suspect]
     Dosage: 50 MG, DAILY
     Route: 048
     Dates: end: 20131008
  11. ATACAND [Concomitant]
     Dosage: 1 DF, DAILY
     Route: 048
     Dates: start: 20131001
  12. VALSARTAN [Concomitant]
     Indication: HYPERTENSION
     Dosage: 160 MG, DAILY
     Route: 048
     Dates: end: 20131001
  13. EPITOMAX [Concomitant]
     Dosage: 100 MG, DAILY
     Route: 048
  14. EUPRESSYL [Concomitant]
     Dosage: 1 DF, 2X/DAY
     Route: 048
  15. AVLOCARDYL [Concomitant]
     Dosage: 160 MG, DAILY
     Route: 048

REACTIONS (11)
  - Overdose [Recovered/Resolved]
  - Altered state of consciousness [Recovered/Resolved]
  - Mixed liver injury [Recovering/Resolving]
  - Hepatocellular injury [Recovering/Resolving]
  - Cholestasis [Recovered/Resolved]
  - Hyperbilirubinaemia [Recovered/Resolved]
  - Ocular icterus [Recovered/Resolved]
  - Abdominal pain [Recovering/Resolving]
  - Cholelithiasis [Unknown]
  - Migraine [Unknown]
  - Gastritis [Unknown]
